FAERS Safety Report 5334916-9 (Version None)
Quarter: 2007Q2

REPORT INFORMATION
  Report Type: 
  Country: None (occurrence: None)
  Receive Date: 20070525
  Receipt Date: 20070514
  Transmission Date: 20071010
  Serious: Yes (Hospitalization)
  Sender: FDA-Public Use
  Company Number: US-ROCHE-410132

PATIENT
  Age: 66 Year
  Sex: Female
  Weight: 99.8 kg

DRUGS (3)
  1. BONIVA [Suspect]
     Indication: OSTEOPOROSIS
     Route: 048
     Dates: start: 20050703, end: 20050703
  2. SYNTHROID [Concomitant]
     Indication: HYPOTHYROIDISM
     Route: 048
  3. ZOCOR [Concomitant]

REACTIONS (19)
  - ARRHYTHMIA [None]
  - BONE PAIN [None]
  - CARDIAC DISORDER [None]
  - CHEST DISCOMFORT [None]
  - CORONARY ARTERY EMBOLISM [None]
  - DIARRHOEA [None]
  - DIZZINESS [None]
  - DYSPNOEA [None]
  - FEELING COLD [None]
  - HEART RATE INCREASED [None]
  - HEART RATE IRREGULAR [None]
  - INFLUENZA LIKE ILLNESS [None]
  - INSOMNIA [None]
  - PALPITATIONS [None]
  - PANCREATIC DISORDER [None]
  - PANIC ATTACK [None]
  - STOMACH DISCOMFORT [None]
  - VISION BLURRED [None]
  - VISUAL ACUITY REDUCED [None]
